FAERS Safety Report 22531750 (Version 1)
Quarter: 2023Q2

REPORT INFORMATION
  Report Type: Spontaneous
  Country: US (occurrence: US)
  Receive Date: 20230607
  Receipt Date: 20230607
  Transmission Date: 20230721
  Serious: No
  Sender: FDA-Public Use
  Company Number: US-MYLANLABS-2023M1037741

PATIENT
  Sex: Female

DRUGS (1)
  1. LIPITOR [Suspect]
     Active Substance: ATORVASTATIN CALCIUM
     Indication: Product used for unknown indication
     Dosage: UNK
     Route: 065

REACTIONS (6)
  - Urinary tract disorder [Unknown]
  - Epicondylitis [Recovering/Resolving]
  - Inflammation [Unknown]
  - Blood calcium increased [Unknown]
  - Drug hypersensitivity [Unknown]
  - Blood creatine increased [Unknown]
